FAERS Safety Report 9584605 (Version 1)
Quarter: 2013Q4

REPORT INFORMATION
  Report Type: Spontaneous
  Country: US (occurrence: US)
  Receive Date: 20131002
  Receipt Date: 20131002
  Transmission Date: 20140711
  Serious: No
  Sender: FDA-Public Use
  Company Number: US-AMGEN-USASP2013054237

PATIENT
  Age: 62 Year
  Sex: Female
  Weight: 68.03 kg

DRUGS (7)
  1. ENBREL [Suspect]
     Indication: RHEUMATOID ARTHRITIS
     Dosage: UNK
     Route: 065
     Dates: start: 1993, end: 2012
  2. FOLIC ACID [Concomitant]
     Dosage: UNK
  3. HUMIRA [Concomitant]
     Dosage: UNK
  4. IMITREX                            /01044801/ [Concomitant]
     Dosage: UNK
  5. MAXALT                             /01406501/ [Concomitant]
     Dosage: UNK
  6. LEXAPRO [Concomitant]
     Dosage: UNK
  7. METHOTREXATE [Concomitant]
     Dosage: UNK

REACTIONS (1)
  - Therapeutic response decreased [Not Recovered/Not Resolved]
